FAERS Safety Report 6435092-1 (Version None)
Quarter: 2009Q4

REPORT INFORMATION
  Report Type: 
  Country: None (occurrence: None)
  Receive Date: 20091110
  Receipt Date: 20091029
  Transmission Date: 20100525
  Serious: Yes (Hospitalization, Other)
  Sender: FDA-Public Use
  Company Number: US-PFIZER INC-2007007954

PATIENT
  Sex: Female
  Weight: 79.2 kg

DRUGS (10)
  1. NEURONTIN [Suspect]
     Indication: NERVE INJURY
     Dosage: 300 MG, UNK
     Route: 048
     Dates: start: 20010101
  2. NEURONTIN [Suspect]
     Indication: PARAESTHESIA
  3. NEURONTIN [Suspect]
     Indication: NEUROPATHY PERIPHERAL
  4. NEURONTIN [Suspect]
     Indication: COMPLEX REGIONAL PAIN SYNDROME
  5. LYRICA [Suspect]
     Indication: NERVE INJURY
     Dosage: 50 MG, 2X/DAY
     Route: 048
     Dates: start: 20060701, end: 20070101
  6. LYRICA [Suspect]
     Indication: NEURALGIA
  7. REGLAN [Suspect]
     Indication: INTESTINAL ULCER
  8. XANAX [Concomitant]
     Indication: ANXIETY
     Dosage: 0.5 MG, 4X/DAY
     Route: 048
     Dates: start: 19870101
  9. XANAX [Concomitant]
     Indication: SLEEP DISORDER
  10. XANAX [Concomitant]
     Indication: NERVE INJURY

REACTIONS (15)
  - ALOPECIA [None]
  - COMPLEX REGIONAL PAIN SYNDROME [None]
  - DEHYDRATION [None]
  - DRUG INEFFECTIVE [None]
  - FEELING ABNORMAL [None]
  - GASTROENTERITIS [None]
  - INTESTINAL ULCER [None]
  - LOSS OF CONSCIOUSNESS [None]
  - MALAISE [None]
  - PAIN [None]
  - PARAESTHESIA [None]
  - SOMNOLENCE [None]
  - THINKING ABNORMAL [None]
  - URTICARIA [None]
  - VISUAL IMPAIRMENT [None]
